FAERS Safety Report 25264140 (Version 1)
Quarter: 2025Q2

REPORT INFORMATION
  Report Type: Spontaneous
  Country: DE (occurrence: DE)
  Receive Date: 20250502
  Receipt Date: 20250502
  Transmission Date: 20250717
  Serious: Yes (Other)
  Sender: SANDOZ
  Company Number: DE-AMGEN-DEUNI2025071234

PATIENT
  Age: 79 Year
  Sex: Male
  Weight: 90 kg

DRUGS (11)
  1. CARFILZOMIB [Suspect]
     Active Substance: CARFILZOMIB
     Indication: Plasma cell myeloma
     Route: 065
     Dates: start: 20240415
  2. DEXAMETHASONE [Suspect]
     Active Substance: DEXAMETHASONE
     Indication: Plasma cell myeloma
     Route: 065
     Dates: start: 20240415
  3. LENALIDOMIDE [Suspect]
     Active Substance: LENALIDOMIDE
     Indication: Plasma cell myeloma
     Route: 065
     Dates: start: 20240415
  4. LENALIDOMIDE [Suspect]
     Active Substance: LENALIDOMIDE
     Route: 065
  5. AMOXICILLIN\CLAVULANATE POTASSIUM [Concomitant]
     Active Substance: AMOXICILLIN\CLAVULANATE POTASSIUM
     Indication: Product used for unknown indication
     Dosage: 1000 MILLIGRAM, TID (THREE TIMES A DAY)
     Route: 065
     Dates: start: 20240829, end: 20240829
  6. Betagalen [Concomitant]
     Indication: Product used for unknown indication
     Dosage: 25 GRAM, BID (TWICE A DAY)
     Route: 065
     Dates: start: 20240722
  7. SULFAMETHOXAZOLE\TRIMETHOPRIM [Concomitant]
     Active Substance: SULFAMETHOXAZOLE\TRIMETHOPRIM
     Indication: Product used for unknown indication
     Dosage: 960 MILLIGRAM, QOD (EVERY OTHER DAY)
     Route: 065
     Dates: start: 20240411
  8. Eks [Concomitant]
     Indication: Product used for unknown indication
     Dosage: 550 MILLILITER, QD
     Route: 065
     Dates: start: 20240708
  9. DIMETHINDENE [Concomitant]
     Active Substance: DIMETHINDENE
     Indication: Product used for unknown indication
     Dosage: 1 MILLIGRAM, QD (DAILY)
     Route: 065
     Dates: start: 20240722
  10. MCP [Concomitant]
     Active Substance: METOCLOPRAMIDE HYDROCHLORIDE
     Indication: Product used for unknown indication
     Route: 065
     Dates: start: 20240430
  11. Roxithromycin Eberth [Concomitant]
     Indication: Product used for unknown indication
     Dosage: 150 MILLIGRAM, BID (TWICE A DAY)
     Route: 065
     Dates: start: 20240830, end: 202409

REACTIONS (2)
  - Neutropenia [Recovered/Resolved]
  - Leukopenia [Recovered/Resolved]

NARRATIVE: CASE EVENT DATE: 20250106
